FAERS Safety Report 7942515-5 (Version None)
Quarter: 2011Q4

REPORT INFORMATION
  Report Type: 
  Country: None (occurrence: None)
  Receive Date: 20111128
  Receipt Date: 20111101
  Transmission Date: 20120403
  Serious: Yes (Hospitalization)
  Sender: FDA-Public Use
  Company Number: JP-GLAXOSMITHKLINE-B0760054A

PATIENT
  Sex: Female

DRUGS (8)
  1. LOSARTAN POTASSIUM [Concomitant]
     Dosage: 100MG PER DAY
     Route: 048
     Dates: start: 20111024
  2. URSO 250 [Concomitant]
     Dosage: 600MG PER DAY
     Route: 048
     Dates: start: 20111024
  3. LIVACT [Concomitant]
     Dosage: 12.45G PER DAY
     Route: 048
     Dates: start: 20111024
  4. ARIXTRA [Suspect]
     Indication: THROMBOSIS PROPHYLAXIS
     Dosage: 2.5MG PER DAY
     Route: 065
     Dates: start: 20111027, end: 20111028
  5. AMOXICILLIN [Concomitant]
     Route: 048
     Dates: start: 20111027
  6. FAMOTIDINE [Concomitant]
     Dosage: 80MG PER DAY
     Route: 048
  7. UNKNOWN DRUG [Concomitant]
     Dosage: 20MG PER DAY
     Route: 048
     Dates: start: 20111024
  8. LOXONIN [Concomitant]
     Indication: ANALGESIC THERAPY
     Dosage: 180MG PER DAY
     Route: 048
     Dates: start: 20111027

REACTIONS (2)
  - HAEMOGLOBIN DECREASED [None]
  - MUSCLE HAEMORRHAGE [None]
